FAERS Safety Report 11382444 (Version 1)
Quarter: 2015Q3

REPORT INFORMATION
  Report Type: Spontaneous
  Country: US (occurrence: US)
  Receive Date: 20150811
  Receipt Date: 20150811
  Transmission Date: 20151125
  Serious: No
  Sender: FDA-Public Use
  Company Number: US-ELI_LILLY_AND_COMPANY-US201007005052

PATIENT
  Age: 65 Year
  Sex: Male

DRUGS (1)
  1. CIALIS [Suspect]
     Active Substance: TADALAFIL
     Indication: ERECTILE DYSFUNCTION
     Dosage: UNK, DAILY (1/D)

REACTIONS (11)
  - Hypertension [Unknown]
  - Drug ineffective [Unknown]
  - Erectile dysfunction [Unknown]
  - Cardiovascular disorder [Unknown]
  - Blood testosterone decreased [Unknown]
  - Osteoporosis [Unknown]
  - Benign prostatic hyperplasia [Unknown]
  - Arthritis [Unknown]
  - Blood cholesterol increased [Unknown]
  - Gastrooesophageal reflux disease [Unknown]
  - Back pain [Unknown]
